FAERS Safety Report 6390911-2 (Version None)
Quarter: 2009Q4

REPORT INFORMATION
  Report Type: 
  Country: None (occurrence: None)
  Receive Date: 20091006
  Receipt Date: 20091001
  Transmission Date: 20100525
  Serious: Yes (Life-Threatening, Hospitalization)
  Sender: FDA-Public Use
  Company Number: DE-MERCK-0907DEU00089

PATIENT
  Age: 48 Year
  Sex: Male
  Weight: 74 kg

DRUGS (6)
  1. ISENTRESS [Suspect]
     Indication: HIV INFECTION
     Route: 048
     Dates: start: 20080101
  2. RETROVIR [Concomitant]
     Indication: HIV INFECTION
     Route: 065
  3. REYATAZ [Concomitant]
     Indication: HIV INFECTION
     Route: 048
  4. NORVIR [Concomitant]
     Route: 048
  5. OMEP [Concomitant]
     Route: 065
  6. MORPHINE SULFATE [Concomitant]
     Route: 065

REACTIONS (1)
  - ACUTE MYOCARDIAL INFARCTION [None]
